FAERS Safety Report 8866452 (Version 2)
Quarter: 2013Q2

REPORT INFORMATION
  Report Type: Report from Study
  Country: BR (occurrence: BR)
  Receive Date: 20121025
  Receipt Date: 20130419
  Transmission Date: 20140414
  Serious: Yes (Death, Life-Threatening, Hospitalization, Other)
  Sender: FDA-Public Use
  Company Number: PHHY2012BR095415

PATIENT
  Age: 64 Year
  Sex: Female

DRUGS (3)
  1. FORASEQ [Suspect]
     Indication: CHRONIC OBSTRUCTIVE PULMONARY DISEASE
     Dosage: 1 DF, Q12H
     Dates: start: 20110708
  2. OXYGEN [Concomitant]
     Indication: RESPIRATION ABNORMAL
     Dosage: UNK, PRN
  3. ATROVENT [Concomitant]
     Indication: DYSPNOEA
     Dosage: 15 TO 30 DROPS

REACTIONS (11)
  - Chronic obstructive pulmonary disease [Fatal]
  - Dyspnoea [Fatal]
  - Traumatic lung injury [Fatal]
  - Vision blurred [Fatal]
  - Loss of consciousness [Fatal]
  - Renal failure [Fatal]
  - Brain death [Fatal]
  - Cardiac failure [Fatal]
  - Pneumonia [Fatal]
  - Respiratory failure [Fatal]
  - Agitation [Unknown]
